FAERS Safety Report 12810916 (Version 1)
Quarter: 2016Q4

REPORT INFORMATION
  Report Type: Spontaneous
  Country: US (occurrence: US)
  Receive Date: 20161004
  Receipt Date: 20161004
  Transmission Date: 20170207
  Serious: Yes (Death)
  Sender: FDA-Public Use
  Company Number: None

PATIENT
  Age: 43 Year
  Sex: Female
  Weight: 37.5 kg

DRUGS (5)
  1. CEFTRIAXONE. [Suspect]
     Active Substance: CEFTRIAXONE
     Indication: KLEBSIELLA INFECTION
     Route: 042
     Dates: start: 20151210
  2. HYDROMORPHONE [Concomitant]
     Active Substance: HYDROMORPHONE
  3. ONDANSETRON [Concomitant]
     Active Substance: ONDANSETRON
  4. CEFAZOLIN [Concomitant]
     Active Substance: CEFAZOLIN
  5. REGULAR INSULIN [Concomitant]
     Active Substance: INSULIN NOS

REACTIONS (2)
  - Anaphylactic reaction [None]
  - Pulseless electrical activity [None]

NARRATIVE: CASE EVENT DATE: 20151210
